FAERS Safety Report 11037750 (Version 2)
Quarter: 2015Q2

REPORT INFORMATION
  Report Type: Spontaneous
  Country: BR (occurrence: BR)
  Receive Date: 20150416
  Receipt Date: 20150522
  Transmission Date: 20150821
  Serious: Yes (Hospitalization, Other)
  Sender: FDA-Public Use
  Company Number: BR-BAYER-2015-031551

PATIENT
  Age: 59 Year
  Sex: Male
  Weight: 75 kg

DRUGS (6)
  1. RIVOTRIL [Concomitant]
     Active Substance: CLONAZEPAM
     Indication: INSOMNIA
     Dosage: 8 GTT, HS
     Route: 048
  2. NEXAVAR [Suspect]
     Active Substance: SORAFENIB
     Indication: HEPATOCELLULAR CARCINOMA
     Dosage: 200 MG EVERY OTHER DAY
     Route: 048
     Dates: start: 201505
  3. NEXAVAR [Suspect]
     Active Substance: SORAFENIB
     Indication: METASTASES TO LUNG
     Dosage: 2 TABLETS IN THE MORNING AND 2 TABLETS AT NIGHT
     Route: 048
     Dates: start: 20150204, end: 20150303
  4. NEXAVAR [Suspect]
     Active Substance: SORAFENIB
     Indication: HEPATOCELLULAR CARCINOMA
     Dosage: 400 MG DAILY DOSE(1 TABLET IN THE MORNING AND 1 TABLET AT NIGHT)
     Route: 048
     Dates: start: 201503, end: 20150321
  5. URSACOL [Concomitant]
     Active Substance: URSODIOL
     Indication: BIOPSY BILE DUCT ABNORMAL
     Dosage: 200 MG, BID
     Route: 048
     Dates: start: 201312
  6. NEXAVAR [Suspect]
     Active Substance: SORAFENIB
     Indication: HEPATOCELLULAR CARCINOMA
     Dosage: 800 MG DAILY DOSE(2 TABLETS IN MORNING AND 2 TABLETS AT NIGHT )
     Route: 048
     Dates: start: 201305, end: 201307

REACTIONS (11)
  - Abdominal abscess [Recovered/Resolved]
  - Dry skin [Recovered/Resolved]
  - Testicular disorder [Recovered/Resolved]
  - Adverse event [Recovered/Resolved]
  - Testicular pain [Recovered/Resolved]
  - Metastases to lung [None]
  - Blister [Recovered/Resolved]
  - Oral pain [Recovered/Resolved]
  - Scrotal erythema [Recovered/Resolved]
  - Skin reaction [Recovered/Resolved]
  - Dry skin [Not Recovered/Not Resolved]

NARRATIVE: CASE EVENT DATE: 2013
